FAERS Safety Report 7191842-0 (Version None)
Quarter: 2010Q4

REPORT INFORMATION
  Report Type: 
  Country: None (occurrence: None)
  Receive Date: 20101223
  Receipt Date: 20101108
  Transmission Date: 20110411
  Serious: No
  Sender: FDA-Public Use
  Company Number: US-BAYER-2010-001473

PATIENT
  Sex: Female
  Weight: 58 kg

DRUGS (3)
  1. ALEVE (CAPLET) [Suspect]
     Dosage: 220 MG, UNK
     Route: 048
  2. LEVOTHYROXINE [Concomitant]
     Dosage: DAILY DOSE 25 MG
  3. PRAVASTATIN [Concomitant]
     Dosage: DAILY DOSE 40 MG

REACTIONS (2)
  - ARTHRALGIA [None]
  - JOINT SWELLING [None]
